FAERS Safety Report 12901636 (Version 1)
Quarter: 2016Q4

REPORT INFORMATION
  Report Type: Spontaneous
  Country: IE (occurrence: IE)
  Receive Date: 20161102
  Receipt Date: 20161102
  Transmission Date: 20170207
  Serious: Yes (Life-Threatening, Other)
  Sender: FDA-Public Use
  Company Number: IE-STRIDES ARCOLAB LIMITED-2016SP016723

PATIENT

DRUGS (1)
  1. IBUPROFEN. [Suspect]
     Active Substance: IBUPROFEN
     Indication: PAIN OF SKIN
     Dosage: UNK

REACTIONS (10)
  - Retinopathy hypertensive [Unknown]
  - Scleroderma renal crisis [Unknown]
  - Hypertensive crisis [Unknown]
  - Rales [Unknown]
  - Acute kidney injury [Unknown]
  - Fatigue [Unknown]
  - Retinal exudates [Unknown]
  - Pulmonary congestion [Unknown]
  - Retinal haemorrhage [Unknown]
  - Myocardial ischaemia [Unknown]
